FAERS Safety Report 9696298 (Version 2)
Quarter: 2014Q1

REPORT INFORMATION
  Report Type: Spontaneous
  Country: JP (occurrence: JP)
  Receive Date: 20131119
  Receipt Date: 20140203
  Transmission Date: 20141002
  Serious: Yes (Other)
  Sender: FDA-Public Use
  Company Number: PHHY2013JP132112

PATIENT
  Age: 57 Year
  Sex: Male

DRUGS (3)
  1. LAMISIL [Suspect]
     Indication: ONYCHOMYCOSIS
     Dosage: 125 MG, QD
     Route: 048
     Dates: start: 20131024
  2. LAMISIL [Suspect]
     Dosage: UKN, EVERY OTHER DAY
     Route: 048
     Dates: end: 20131114
  3. BLOPRESS [Concomitant]
     Dosage: 4 MG
     Route: 048

REACTIONS (1)
  - Blood pressure increased [Recovered/Resolved]
